FAERS Safety Report 13216581 (Version 2)
Quarter: 2017Q3

REPORT INFORMATION
  Report Type: Report from Study
  Country: BR (occurrence: BR)
  Receive Date: 20170210
  Receipt Date: 20170829
  Transmission Date: 20171127
  Serious: Yes (Hospitalization, Other)
  Sender: FDA-Public Use
  Company Number: BR-ROCHE-1614307

PATIENT
  Sex: Female
  Weight: 63 kg

DRUGS (3)
  1. XOLAIR [Suspect]
     Active Substance: OMALIZUMAB
     Dosage: 2 DF
     Route: 058
  2. XOLAIR [Suspect]
     Active Substance: OMALIZUMAB
     Route: 058
  3. XOLAIR [Suspect]
     Active Substance: OMALIZUMAB
     Indication: ASTHMA
     Route: 065
     Dates: start: 20140312

REACTIONS (10)
  - Platelet count increased [Not Recovered/Not Resolved]
  - Secretion discharge [Recovering/Resolving]
  - Malaise [Unknown]
  - Platelet count decreased [Not Recovered/Not Resolved]
  - Asthmatic crisis [Not Recovered/Not Resolved]
  - Asthenia [Recovering/Resolving]
  - Pneumonia [Not Recovered/Not Resolved]
  - Tuberculosis [Unknown]
  - Fatigue [Recovering/Resolving]
  - Asthma [Not Recovered/Not Resolved]
